FAERS Safety Report 5095126-6 (Version None)
Quarter: 2006Q3

REPORT INFORMATION
  Report Type: 
  Country: None (occurrence: None)
  Receive Date: 20060731
  Receipt Date: 20060417
  Transmission Date: 20061208
  Serious: No
  Sender: FDA-Public Use
  Company Number: 2006PV012229

PATIENT
  Age: 77 Year
  Sex: Female
  Weight: 79.3795 kg

DRUGS (5)
  1. BYETTA [Suspect]
     Indication: DIABETES MELLITUS NON-INSULIN-DEPENDENT
     Dosage: SEE IMAGE
     Route: 058
     Dates: start: 20051027, end: 20060101
  2. BYETTA [Suspect]
     Indication: DIABETES MELLITUS NON-INSULIN-DEPENDENT
     Dosage: SEE IMAGE
     Route: 058
     Dates: start: 20060101
  3. GLIMEPRIDE [Concomitant]
  4. LANTUS [Concomitant]
  5. NEXIUM [Concomitant]

REACTIONS (6)
  - DECREASED APPETITE [None]
  - DUODENITIS [None]
  - DYSPEPSIA [None]
  - NAUSEA [None]
  - OESOPHAGITIS [None]
  - WEIGHT DECREASED [None]
